FAERS Safety Report 15321559 (Version 1)
Quarter: 2018Q3

REPORT INFORMATION
  Report Type: Spontaneous
  Country: US (occurrence: US)
  Receive Date: 20180821
  Receipt Date: 20180821
  Transmission Date: 20181010
  Serious: Yes (Other)
  Sender: FDA-Public Use
  Company Number: None

PATIENT
  Age: 68 Year
  Sex: Female
  Weight: 67.13 kg

DRUGS (7)
  1. ASPIRIN 81MG [Concomitant]
     Active Substance: ASPIRIN
  2. MULITVITAMIN GUMMIES [Concomitant]
  3. SIMVASTATIN. [Concomitant]
     Active Substance: SIMVASTATIN
  4. PROPRANOLOL [Concomitant]
     Active Substance: PROPRANOLOL HYDROCHLORIDE
  5. LOSARTAN POTASSIUM. [Concomitant]
     Active Substance: LOSARTAN POTASSIUM
  6. CIPRO [Suspect]
     Active Substance: CIPROFLOXACIN HYDROCHLORIDE
     Indication: BRONCHITIS
     Dosage: ?          QUANTITY:20 DF DOSAGE FORM;?
     Route: 048
     Dates: start: 20180411, end: 20180419
  7. VITAMIN D [Concomitant]
     Active Substance: CHOLECALCIFEROL

REACTIONS (5)
  - Arthralgia [None]
  - Gait disturbance [None]
  - Groin pain [None]
  - Joint swelling [None]
  - Swelling [None]

NARRATIVE: CASE EVENT DATE: 20180419
